FAERS Safety Report 7070603-7 (Version None)
Quarter: 2010Q4

REPORT INFORMATION
  Report Type: 
  Country: None (occurrence: None)
  Receive Date: 20101029
  Receipt Date: 20101022
  Transmission Date: 20110411
  Serious: Yes (Other)
  Sender: FDA-Public Use
  Company Number: US-PFIZER INC-2010131558

PATIENT
  Sex: Male
  Weight: 111 kg

DRUGS (6)
  1. CHANTIX [Suspect]
     Indication: SMOKING CESSATION THERAPY
     Dosage: 0.5 MG, 1X/DAY
     Route: 048
     Dates: start: 20101012, end: 20101014
  2. CHANTIX [Suspect]
     Dosage: 0.5 MG, 2X/DAY
     Route: 048
     Dates: start: 20101015, end: 20101018
  3. ABILIFY [Concomitant]
     Indication: SCHIZOPHRENIA
     Dosage: UNK
  4. LUVOX [Concomitant]
     Indication: SCHIZOPHRENIA
     Dosage: UNK
  5. BUSPAR [Concomitant]
     Indication: SCHIZOPHRENIA
     Dosage: UNK
  6. KLONOPIN [Concomitant]
     Indication: SCHIZOPHRENIA
     Dosage: UNK

REACTIONS (2)
  - DEPRESSION [None]
  - MENTAL DISORDER [None]
